FAERS Safety Report 9445130 (Version 1)
Quarter: 2013Q3

REPORT INFORMATION
  Report Type: Spontaneous
  Country: CA (occurrence: CA)
  Receive Date: 20130807
  Receipt Date: 20130807
  Transmission Date: 20140515
  Serious: Yes (Hospitalization, Other)
  Sender: FDA-Public Use
  Company Number: CA-009507513-1308CAN002718

PATIENT
  Sex: Male

DRUGS (2)
  1. PEGETRON [Suspect]
     Indication: HEPATITIS C
     Dosage: UNK
     Route: 058
  2. VICTRELIS [Suspect]
     Indication: HEPATITIS C
     Route: 048

REACTIONS (4)
  - Coma [Unknown]
  - Convulsion [Unknown]
  - Polydipsia [Unknown]
  - Electrolyte depletion [Unknown]
